FAERS Safety Report 7407596-6 (Version None)
Quarter: 2011Q2

REPORT INFORMATION
  Report Type: 
  Country: None (occurrence: None)
  Receive Date: 20110405
  Receipt Date: 20110322
  Transmission Date: 20111010
  Serious: Yes (Death)
  Sender: FDA-Public Use
  Company Number: WAES 0912USA03571

PATIENT
  Age: 66 Year
  Sex: Male

DRUGS (20)
  1. ISENTRESS [Suspect]
     Indication: HIV INFECTION
     Dosage: 800 MG, DAILY, PO
     Route: 048
     Dates: start: 20090522, end: 20090607
  2. ISENTRESS [Suspect]
     Indication: HIV INFECTION
     Dosage: 800 MG, DAILY, PO
     Route: 048
     Dates: start: 20080908, end: 20090417
  3. ISENTRESS [Suspect]
     Indication: HIV INFECTION
     Dosage: 800 MG, DAILY, PO
     Route: 048
     Dates: start: 20090428, end: 20090519
  4. TAB EPZICOM (ABACAVIR SULFATE + LAMIVUDINE [Concomitant]
     Indication: HIV INFECTION
     Dosage: 1 TAB DAILY, PO
     Route: 048
     Dates: start: 20060606, end: 20080802
  5. TAB EPZICOM (ABACAVIR SULFATE + LAMIVUDINE [Concomitant]
     Indication: HIV INFECTION
     Dosage: 1 TAB DAILY, PO
     Route: 048
     Dates: start: 20090428, end: 20090519
  6. TAB EPZICOM (ABACAVIR SULFATE + LAMIVUDINE [Concomitant]
     Indication: HIV INFECTION
     Dosage: 1 TAB DAILY, PO
     Route: 048
     Dates: start: 20080809, end: 20090417
  7. TAB EPZICOM (ABACAVIR SULFATE + LAMIVUDINE [Concomitant]
     Indication: HIV INFECTION
     Dosage: 1 TAB DAILY, PO
     Route: 048
     Dates: start: 20090522, end: 20090607
  8. ANTIHEMOPHILIC FACTOR (HUMAN) [Concomitant]
  9. LASIX [Concomitant]
  10. REYATAZ [Suspect]
     Indication: HIV INFECTION
     Dosage: 400 MG, DAILY, PO
     Route: 048
     Dates: start: 20070619, end: 20080802
  11. OMEPRAL [Concomitant]
  12. CONIEL [Concomitant]
  13. LANTUS [Concomitant]
  14. RISPEDRAL [Concomitant]
  15. LACTULOSE [Concomitant]
  16. NOVOLIN R [Concomitant]
  17. HUMALOG [Concomitant]
  18. LEVEMIR [Concomitant]
  19. PEPCID [Concomitant]
  20. VASOTEC [Concomitant]

REACTIONS (3)
  - HYPERTENSION [None]
  - HEPATITIS C [None]
  - EPIDIDYMITIS [None]
